FAERS Safety Report 6538102-6 (Version None)
Quarter: 2010Q1

REPORT INFORMATION
  Report Type: 
  Country: None (occurrence: None)
  Receive Date: 20100110
  Receipt Date: 20091224
  Transmission Date: 20100710
  Serious: Yes (Hospitalization)
  Sender: FDA-Public Use
  Company Number: AXJPN-09-0610

PATIENT
  Age: 53 Year
  Sex: Female
  Weight: 60 kg

DRUGS (9)
  1. ABRAXANE [Suspect]
     Indication: BREAST CANCER METASTATIC
     Dosage: (226 MG)
     Dates: start: 20091112
  2. ZOMETA [Concomitant]
  3. NORVASC [Concomitant]
  4. AMLODIPINE [Concomitant]
  5. URSODIOL [Concomitant]
  6. GLYCYRON (GLYCYRON) [Concomitant]
  7. MICARDIS [Concomitant]
  8. LOXOPROFEN (LOXOPROFEN) [Concomitant]
  9. MUCOSTA (REBAMIPIDE) [Concomitant]

REACTIONS (7)
  - BLOOD PRESSURE INCREASED [None]
  - CONDITION AGGRAVATED [None]
  - DIABETES MELLITUS [None]
  - DIARRHOEA [None]
  - FACIAL PALSY [None]
  - NAUSEA [None]
  - VOMITING [None]
